FAERS Safety Report 9972355 (Version 1)
Quarter: 2014Q1

REPORT INFORMATION
  Report Type: Report from Study
  Country: US (occurrence: US)
  Receive Date: 20140306
  Receipt Date: 20140306
  Transmission Date: 20141002
  Serious: Yes (Other)
  Sender: FDA-Public Use
  Company Number: US-ABBVIE-13P-163-1151508-00

PATIENT
  Age: 52 Year
  Sex: Male

DRUGS (6)
  1. HUMIRA [Suspect]
     Indication: CROHN^S DISEASE
     Dosage: 1ST LOADING DOSE
     Dates: start: 201305
  2. HUMIRA [Suspect]
     Dosage: 2ND LOADING DOSE
  3. HUMIRA [Suspect]
  4. 6-MP [Concomitant]
     Indication: CROHN^S DISEASE
  5. LIALDA [Concomitant]
     Indication: PRODUCT USED FOR UNKNOWN INDICATION
  6. PREDNISONE [Concomitant]

REACTIONS (6)
  - Lupus-like syndrome [Not Recovered/Not Resolved]
  - Feeling abnormal [Not Recovered/Not Resolved]
  - Pain [Unknown]
  - Nausea [Unknown]
  - Bone pain [Not Recovered/Not Resolved]
  - Arthralgia [Not Recovered/Not Resolved]
